FAERS Safety Report 13901048 (Version 1)
Quarter: 2017Q3

REPORT INFORMATION
  Report Type: Spontaneous
  Country: JP (occurrence: JP)
  Receive Date: 20170824
  Receipt Date: 20170824
  Transmission Date: 20171127
  Serious: Yes (Other)
  Sender: FDA-Public Use
  Company Number: JP-ALKEM LABORATORIES LIMITED-JP-ALKEM-2017-00552

PATIENT
  Age: 43 Year
  Sex: Male

DRUGS (3)
  1. DOGMATYL [Suspect]
     Active Substance: SULPIRIDE
     Indication: DEPRESSION
     Dosage: UNKNOWN
     Route: 065
  2. DULOXETINE HYDROCHLORIDE. [Suspect]
     Active Substance: DULOXETINE HYDROCHLORIDE
     Indication: DEPRESSION
     Dosage: UNKNOWN
     Route: 065
  3. CLONAZEPAM. [Suspect]
     Active Substance: CLONAZEPAM
     Indication: DEPRESSION
     Dosage: UNKNOWN
     Route: 065

REACTIONS (4)
  - Haematocrit increased [Recovered/Resolved]
  - Macular oedema [Recovered/Resolved]
  - Red blood cell count increased [Recovered/Resolved]
  - Retinal vein occlusion [Recovered/Resolved]
